FAERS Safety Report 17393434 (Version 1)
Quarter: 2020Q1

REPORT INFORMATION
  Report Type: Spontaneous
  Country: US (occurrence: US)
  Receive Date: 20200208
  Receipt Date: 20200208
  Transmission Date: 20200409
  Serious: No
  Sender: FDA-Public Use
  Company Number: US-TEVA-2020-US-1181581

PATIENT
  Age: 65 Year
  Sex: Female
  Weight: 61.22 kg

DRUGS (7)
  1. MUCUS D [Suspect]
     Active Substance: GUAIFENESIN\PSEUDOEPHEDRINE HYDROCHLORIDE
     Indication: RESPIRATORY TRACT CONGESTION
     Dosage: 1 DOSAGE FORMS DAILY; PROLONGED RELEASE TABLET, (PSEUDOEPHEDRINE HYDROCHLORIDE 60 MG, GUAIFENESIN 60
     Route: 048
     Dates: start: 20200129, end: 20200129
  2. MUCUS D [Suspect]
     Active Substance: GUAIFENESIN\PSEUDOEPHEDRINE HYDROCHLORIDE
     Indication: NASAL CONGESTION
  3. CALCIUM +D3 [Concomitant]
     Active Substance: CALCIUM\CHOLECALCIFEROL
  4. MULTIVITAMIN FOR WOMEN [Concomitant]
     Active Substance: MINERALS\VITAMINS
  5. LEVOTHYROXINE. [Concomitant]
     Active Substance: LEVOTHYROXINE
  6. SYMBICORT [Concomitant]
     Active Substance: BUDESONIDE\FORMOTEROL FUMARATE DIHYDRATE
  7. BIOTIN [Concomitant]
     Active Substance: BIOTIN

REACTIONS (5)
  - Ocular hyperaemia [Recovering/Resolving]
  - Eye pain [Not Recovered/Not Resolved]
  - Underdose [Unknown]
  - Eye discharge [Recovered/Resolved]
  - Insomnia [Not Recovered/Not Resolved]

NARRATIVE: CASE EVENT DATE: 20200129
